FAERS Safety Report 18022186 (Version 1)
Quarter: 2020Q3

REPORT INFORMATION
  Report Type: Spontaneous
  Country: GB (occurrence: GB)
  Receive Date: 20200715
  Receipt Date: 20200715
  Transmission Date: 20201103
  Serious: Yes (Other)
  Sender: FDA-Public Use
  Company Number: GB-SUN PHARMACEUTICAL INDUSTRIES LTD-2020RR-253594

PATIENT
  Age: 64 Year
  Sex: Male
  Weight: 88 kg

DRUGS (2)
  1. LOSINATE MR [Concomitant]
     Active Substance: TAMSULOSIN
     Indication: BENIGN PROSTATIC HYPERPLASIA
     Dosage: ()
     Route: 065
     Dates: end: 2020
  2. CONTIFLO XL [Suspect]
     Active Substance: TAMSULOSIN HYDROCHLORIDE
     Indication: BENIGN PROSTATIC HYPERPLASIA
     Dosage: 400 MILLIGRAM, UNK
     Route: 048
     Dates: start: 20200515, end: 20200618

REACTIONS (5)
  - Pollakiuria [Recovered/Resolved]
  - Product substitution issue [Unknown]
  - Micturition urgency [Recovered/Resolved]
  - Drug ineffective [Recovered/Resolved]
  - Urinary incontinence [Recovered/Resolved]

NARRATIVE: CASE EVENT DATE: 20200515
